FAERS Safety Report 8639741 (Version 4)
Quarter: 2012Q4

REPORT INFORMATION
  Report Type: 
  Country: JP (occurrence: JP)
  Receive Date: 20120628
  Receipt Date: 20121114
  Transmission Date: 20130627
  Serious: Yes (Life-Threatening, Hospitalization, Other)
  Sender: FDA-Public Use
  Company Number: JP-AMGEN-JPNSP2012039352

PATIENT
  Age: 62 Year
  Sex: Female
  Weight: 46.6 kg

DRUGS (9)
  1. ENBREL [Suspect]
     Indication: RHEUMATOID ARTHRITIS
     Dosage: 25 mg, 2x/week
     Route: 058
     Dates: start: 20091028, end: 20101219
  2. ENBREL [Suspect]
     Dosage: 50 mg, weekly
     Dates: start: 20101220, end: 20120601
  3. RHEUMATREX /00113802/ [Concomitant]
     Indication: RHEUMATOID ARTHRITIS
     Dosage: 6 mg, weekly
     Route: 048
     Dates: start: 20090925, end: 20120601
  4. FOLIAMIN [Concomitant]
     Indication: PROPHYLAXIS
     Dosage: 5 mg, weekly
     Route: 048
     Dates: start: 20090925, end: 20120601
  5. FORTEO [Concomitant]
     Dosage: 600 ug
     Route: 058
  6. PARIET [Concomitant]
     Dosage: 10 mg, UNK
  7. PURSENNID /00142207/ [Concomitant]
     Dosage: UNK
  8. WARKMIN [Concomitant]
     Dosage: 1 ug
  9. EXCEGRAN [Concomitant]
     Dosage: 100 mg, UNK

REACTIONS (1)
  - Colon cancer [Unknown]
